FAERS Safety Report 11425234 (Version 1)
Quarter: 2015Q3

REPORT INFORMATION
  Report Type: Spontaneous
  Country: US (occurrence: US)
  Receive Date: 20150827
  Receipt Date: 20150827
  Transmission Date: 20151125
  Serious: Yes (Hospitalization)
  Sender: FDA-Public Use
  Company Number: US-MYLANLABS-2015M1028800

PATIENT

DRUGS (7)
  1. HALOPERIDOL. [Suspect]
     Active Substance: HALOPERIDOL
     Indication: DELIRIUM
     Dosage: ONE DOSE OF 5MG
     Route: 042
  2. OXYCODONE [Suspect]
     Active Substance: OXYCODONE
     Indication: PRODUCT USED FOR UNKNOWN INDICATION
     Dosage: OCCASIONALLY AND THE, PROGRESSED TO DAILY 60 MG
     Route: 048
  3. LORAZEPAM. [Suspect]
     Active Substance: LORAZEPAM
     Indication: DELIRIUM
     Dosage: 1 MG AND THEN, SECOND DOSE OF 1 MG ON ICU DAY 5
     Route: 065
  4. OXYMORPHONE [Suspect]
     Active Substance: OXYMORPHONE
     Indication: PRODUCT USED FOR UNKNOWN INDICATION
     Dosage: 10 MG DAILY
     Route: 045
  5. OXYMORPHONE [Suspect]
     Active Substance: OXYMORPHONE
     Dosage: 10 MG DAILY
     Route: 048
  6. OXYCODONE [Suspect]
     Active Substance: OXYCODONE
     Dosage: OCCASIONALLY AND THEN, PROGRESSED TO DAILY 60 MG
     Route: 045
  7. PIPERACILLIN/TAZOBACTAM [Suspect]
     Active Substance: PIPERACILLIN SODIUM\TAZOBACTAM SODIUM
     Indication: PRODUCT USED FOR UNKNOWN INDICATION
     Route: 065

REACTIONS (8)
  - Delirium [Recovered/Resolved]
  - Rhabdomyolysis [Unknown]
  - Oesophageal rupture [None]
  - Hallucinations, mixed [None]
  - Drug withdrawal syndrome [None]
  - Hallucination, tactile [None]
  - Dystonia [None]
  - Pneumomediastinum [None]
